FAERS Safety Report 8623912-1 (Version None)
Quarter: 2012Q3

REPORT INFORMATION
  Report Type: 
  Country: None (occurrence: None)
  Receive Date: 20120827
  Receipt Date: 20120821
  Transmission Date: 20120928
  Serious: Yes (Other)
  Sender: FDA-Public Use
  Company Number: PHBS2004BR00991

PATIENT
  Sex: Male
  Weight: 87 kg

DRUGS (7)
  1. TEGRETOL [Suspect]
     Indication: EPILEPSY
     Dosage: 600 MG, TID
     Route: 048
     Dates: end: 20031201
  2. TEGRETOL [Suspect]
     Dosage: 1200 MG DAILY (1 TABLET EVERY 8 HOURS)
  3. LEVOMEFOLATE CALCIUM [Concomitant]
     Indication: PSYCHOTIC DISORDER
     Dosage: 1 TABLET EVERY 12 HOURS
     Route: 048
     Dates: start: 20050101
  4. AMPLICTIL [Concomitant]
     Route: 065
  5. HALOPERIDOL [Concomitant]
     Indication: PSYCHOTIC DISORDER
     Dosage: 1 TABLET EVERY 12 HOURS
     Route: 048
     Dates: start: 20040101
  6. TEGRETOL [Suspect]
     Dosage: 800 MG, BID
     Route: 048
     Dates: start: 20031201, end: 20040101
  7. PROMETHAZINE [Concomitant]
     Indication: ANAPHYLACTIC REACTION
     Dosage: 1 TABLET EVERY 12 HOURS,
     Route: 048

REACTIONS (4)
  - SOMNOLENCE [None]
  - ACUTE PSYCHOSIS [None]
  - HALLUCINATION, AUDITORY [None]
  - HALLUCINATION, VISUAL [None]
